FAERS Safety Report 7936618-9 (Version None)
Quarter: 2011Q4

REPORT INFORMATION
  Report Type: 
  Country: None (occurrence: None)
  Receive Date: 20111123
  Receipt Date: 20111115
  Transmission Date: 20120403
  Serious: Yes (Hospitalization, Other)
  Sender: FDA-Public Use
  Company Number: CA-JNJFOC-20111005015

PATIENT
  Sex: Female

DRUGS (7)
  1. ATIVAN [Concomitant]
  2. ENTOCORT EC [Concomitant]
  3. REMICADE [Suspect]
     Indication: CROHN'S DISEASE
     Dosage: HAS HAD 61 INFUSIONS
     Route: 042
  4. LOMOTIL [Concomitant]
  5. REMICADE [Suspect]
     Dosage: TOTAL OF 60 INFUSIONS
     Route: 042
     Dates: start: 20111004
  6. VITAMIN B-12 [Concomitant]
     Route: 050
  7. GRAVOL TAB [Concomitant]
     Indication: PREMEDICATION
     Route: 042
     Dates: start: 20111004

REACTIONS (3)
  - INFUSION RELATED REACTION [None]
  - NAUSEA [None]
  - NEPHROLITHIASIS [None]
